FAERS Safety Report 5189991-1 (Version None)
Quarter: 2006Q4

REPORT INFORMATION
  Report Type: 
  Country: None (occurrence: None)
  Receive Date: 20061215
  Receipt Date: 20061204
  Transmission Date: 20070319
  Serious: Yes (Death, Hospitalization)
  Sender: FDA-Public Use
  Company Number: 2006148078

PATIENT
  Age: 74 Year
  Sex: Female

DRUGS (1)
  1. LIPITOR [Suspect]
     Indication: HYPERCHOLESTEROLAEMIA
     Dosage: 20 MG (20 MG, DAILY), ORAL
     Route: 048
     Dates: start: 20020607, end: 20060626

REACTIONS (5)
  - HEPATITIS [None]
  - MYOCARDIAL INFARCTION [None]
  - POLYMYOSITIS [None]
  - RESPIRATORY FAILURE [None]
  - RHABDOMYOLYSIS [None]
